FAERS Safety Report 4498738-3 (Version None)
Quarter: 2004Q3

REPORT INFORMATION
  Report Type: 
  Country: None (occurrence: None)
  Receive Date: 20040927
  Receipt Date: 20040617
  Transmission Date: 20050211
  Serious: No
  Sender: FDA-Public Use
  Company Number: USA040670438

PATIENT
  Sex: Male

DRUGS (2)
  1. STRATTERA [Suspect]
     Dosage: 40 MG DAY
     Dates: start: 20040616
  2. ALLERGY SHOT [Concomitant]

REACTIONS (1)
  - HAIR GROWTH ABNORMAL [None]
